FAERS Safety Report 7359058-2 (Version None)
Quarter: 2011Q1

REPORT INFORMATION
  Report Type: 
  Country: None (occurrence: None)
  Receive Date: 20110307
  Receipt Date: 20110301
  Transmission Date: 20110831
  Serious: Yes (Life-Threatening)
  Sender: FDA-Public Use
  Company Number: 2011TJ0002

PATIENT
  Age: 48 Year
  Sex: Female

DRUGS (1)
  1. TWINJECT(EPINEPHRINE) INJECTION [Suspect]
     Indication: HYPERSENSITIVITY
     Dosage: 0.3 MG, AS NEEDED
     Dates: start: 20110126, end: 20110126

REACTIONS (2)
  - INJECTION SITE HAEMATOMA [None]
  - DEVICE FAILURE [None]
